FAERS Safety Report 4754058-0 (Version None)
Quarter: 2005Q3

REPORT INFORMATION
  Report Type: 
  Country: None (occurrence: None)
  Receive Date: 20050826
  Receipt Date: 20050818
  Transmission Date: 20060218
  Serious: Yes (Death)
  Sender: FDA-Public Use
  Company Number: US-MERCK-0508USA03301

PATIENT
  Age: 77 Year
  Sex: Female

DRUGS (1)
  1. VIOXX [Suspect]
     Indication: INFLAMMATION
     Route: 048

REACTIONS (1)
  - CEREBROVASCULAR ACCIDENT [None]
